FAERS Safety Report 10889401 (Version 1)
Quarter: 2015Q1

REPORT INFORMATION
  Report Type: Spontaneous
  Country: FR (occurrence: FR)
  Receive Date: 20150305
  Receipt Date: 20150305
  Transmission Date: 20150721
  Serious: Yes (Other)
  Sender: FDA-Public Use
  Company Number: FR-B.I. PHARMACEUTICALS,INC./RIDGEFIELD-2015-BI-11291FF

PATIENT
  Age: 85 Year
  Sex: Male

DRUGS (1)
  1. PRADAXA [Suspect]
     Active Substance: DABIGATRAN ETEXILATE MESYLATE
     Indication: PRODUCT USED FOR UNKNOWN INDICATION
     Dosage: 220 MG
     Route: 048
     Dates: end: 20150226

REACTIONS (6)
  - Haemorrhage [Recovered/Resolved]
  - Haemorrhoids [Unknown]
  - Influenza [Unknown]
  - Fatigue [Unknown]
  - Malignant melanoma [Not Recovered/Not Resolved]
  - Polyp [Unknown]

NARRATIVE: CASE EVENT DATE: 201502
